FAERS Safety Report 4636797-5 (Version None)
Quarter: 2005Q2

REPORT INFORMATION
  Report Type: 
  Country: None (occurrence: None)
  Receive Date: 20050415
  Receipt Date: 20050406
  Transmission Date: 20051028
  Serious: Yes (Hospitalization)
  Sender: FDA-Public Use
  Company Number: FR-ABBOTT-05P-056-0296831-00

PATIENT
  Age: 89 Year
  Sex: Female
  Weight: 55 kg

DRUGS (10)
  1. ZECLAR [Suspect]
     Indication: BRONCHITIS ACUTE
     Route: 048
     Dates: start: 20050225, end: 20050308
  2. ACENOCOUMAROL [Interacting]
     Indication: ATRIAL FLUTTER
     Route: 048
     Dates: end: 20050306
  3. ACENOCOUMAROL [Interacting]
     Indication: ATRIAL FIBRILLATION
  4. FUROSEMIDE [Concomitant]
     Indication: DRUG USE FOR UNKNOWN INDICATION
     Route: 048
  5. ENALAPRIL MALEATE [Concomitant]
     Indication: DRUG USE FOR UNKNOWN INDICATION
     Route: 048
     Dates: end: 20050308
  6. BISOPROL HEMIFUMARATE [Concomitant]
     Indication: DRUG USE FOR UNKNOWN INDICATION
     Route: 048
     Dates: end: 20050309
  7. HYDROXYCARBAMIDE [Concomitant]
     Indication: DRUG USE FOR UNKNOWN INDICATION
     Route: 048
     Dates: end: 20050307
  8. PREDNISOLONE [Concomitant]
     Indication: DRUG USE FOR UNKNOWN INDICATION
     Route: 048
     Dates: start: 20050225
  9. SYMBICORT [Concomitant]
     Indication: DRUG USE FOR UNKNOWN INDICATION
     Route: 048
  10. NOCTRAN 10 [Concomitant]
     Indication: DRUG USE FOR UNKNOWN INDICATION

REACTIONS (6)
  - ANAEMIA [None]
  - DRUG INTERACTION [None]
  - HAEMATOMA [None]
  - HYPOTENSION [None]
  - PALLOR [None]
  - PROTHROMBIN LEVEL DECREASED [None]
